FAERS Safety Report 7939569-9 (Version None)
Quarter: 2011Q4

REPORT INFORMATION
  Report Type: 
  Country: None (occurrence: None)
  Receive Date: 20111125
  Receipt Date: 20110907
  Transmission Date: 20120403
  Serious: No
  Sender: FDA-Public Use
  Company Number: US-BAYER-2011-089359

PATIENT

DRUGS (3)
  1. CANNABIS LOTIONS [Concomitant]
     Indication: MUSCULOSKELETAL PAIN
  2. ALEVE (CAPLET) [Suspect]
     Indication: MUSCULOSKELETAL PAIN
  3. ASPERCREME [Concomitant]
     Indication: MUSCULOSKELETAL PAIN

REACTIONS (1)
  - MUSCULOSKELETAL PAIN [None]
